FAERS Safety Report 9548032 (Version 2)
Quarter: 2013Q3

REPORT INFORMATION
  Report Type: Spontaneous
  Country: US (occurrence: US)
  Receive Date: 20130924
  Receipt Date: 20130924
  Transmission Date: 20140515
  Serious: Yes (Hospitalization, Other)
  Sender: FDA-Public Use
  Company Number: US-PFIZER INC-2013185798

PATIENT
  Age: 6 Year
  Sex: Female

DRUGS (3)
  1. GENOTROPIN [Suspect]
     Indication: GROWTH HORMONE DEFICIENCY
     Dosage: 1.2 (UNKNOWN UNIT), DAILY
     Route: 058
     Dates: end: 20130619
  2. CORTEF [Concomitant]
     Dosage: UNK
  3. LEVOTHYROXINE [Concomitant]
     Dosage: UNK

REACTIONS (3)
  - Convulsion [Unknown]
  - Hypoglycaemia [Unknown]
  - Insulin-like growth factor increased [Unknown]
